FAERS Safety Report 5188472-9 (Version None)
Quarter: 2006Q4

REPORT INFORMATION
  Report Type: 
  Country: None (occurrence: None)
  Receive Date: 20061221
  Receipt Date: 20061213
  Transmission Date: 20070319
  Serious: Yes (Hospitalization)
  Sender: FDA-Public Use
  Company Number: US-KINGPHARMUSA00001-K200601573

PATIENT
  Age: 82 Year
  Sex: Male

DRUGS (8)
  1. ALTACE [Suspect]
     Dosage: 5 MG, QD
     Route: 048
  2. VOLTAREN [Suspect]
     Route: 048
  3. ESIDRIX [Suspect]
     Dosage: 25 MG, QD
     Route: 048
  4. FUCIDINE                           /00065702/ [Suspect]
     Indication: VARICOSE ULCERATION
     Dosage: 1000 MG, QD
     Route: 048
     Dates: start: 20061008, end: 20061025
  5. FLAMMAZINE [Suspect]
     Route: 061
  6. VIRLIX [Concomitant]
     Route: 048
  7. BIAFINE                            /00834001/ [Concomitant]
     Route: 061
  8. DOLIPRANE [Concomitant]

REACTIONS (9)
  - ANAEMIA [None]
  - GASTROINTESTINAL HAEMORRHAGE [None]
  - HEPATIC LESION [None]
  - PANCREATIC MASS [None]
  - PANCYTOPENIA [None]
  - PETECHIAE [None]
  - PLATELET COUNT DECREASED [None]
  - RED BLOOD CELL COUNT DECREASED [None]
  - WHITE BLOOD CELL COUNT DECREASED [None]
